FAERS Safety Report 16292197 (Version 2)
Quarter: 2019Q2

REPORT INFORMATION
  Report Type: Spontaneous
  Country: FR (occurrence: FR)
  Receive Date: 20190509
  Receipt Date: 20190520
  Transmission Date: 20190711
  Serious: Yes (Hospitalization, Other)
  Sender: FDA-Public Use
  Company Number: FR-INDIVIOR LIMITED-INDV-119438-2019

PATIENT
  Age: 32 Year
  Sex: Male

DRUGS (2)
  1. SUBUTEX [Suspect]
     Active Substance: BUPRENORPHINE HYDROCHLORIDE
     Indication: PRODUCT USED FOR UNKNOWN INDICATION
     Dosage: 16 MILLIGRAM, QD
     Route: 005
  2. NICOTIANA TABACUM [Suspect]
     Active Substance: TOBACCO LEAF
     Indication: TOBACCO USER
     Dosage: 3 PACKS PER DAY, UNK
     Route: 055

REACTIONS (6)
  - Intentional product use issue [Unknown]
  - Thrombocytopenia [Recovering/Resolving]
  - Fungal infection [Recovering/Resolving]
  - Hepatitis [Not Recovered/Not Resolved]
  - Drug dependence [Not Recovered/Not Resolved]
  - Varicella [Recovering/Resolving]

NARRATIVE: CASE EVENT DATE: 20190219
